FAERS Safety Report 6929893-0 (Version None)
Quarter: 2010Q3

REPORT INFORMATION
  Report Type: 
  Country: None (occurrence: None)
  Receive Date: 20100818
  Receipt Date: 20100814
  Transmission Date: 20110219
  Serious: Yes (Hospitalization)
  Sender: FDA-Public Use
  Company Number: US-GILEAD-2010-0031078

PATIENT
  Sex: Female
  Weight: 53 kg

DRUGS (15)
  1. LETAIRIS [Suspect]
     Indication: PULMONARY ARTERIAL HYPERTENSION
     Route: 048
     Dates: start: 20100709
  2. ACYCLOVIR [Concomitant]
  3. COREG [Concomitant]
  4. BACTRIM [Concomitant]
  5. RENVELA [Concomitant]
  6. NORVIR [Concomitant]
  7. INTELENCE [Concomitant]
  8. PREZISTA [Concomitant]
  9. DEPAKOTE [Concomitant]
  10. LYRICA [Concomitant]
  11. ISENTRESS [Concomitant]
  12. PROTONIX [Concomitant]
  13. XANAX [Concomitant]
  14. REMERON [Concomitant]
  15. RENAL TAB MULTIVIT [Concomitant]

REACTIONS (1)
  - FLUID RETENTION [None]
